FAERS Safety Report 7338413-0 (Version None)
Quarter: 2011Q1

REPORT INFORMATION
  Report Type: 
  Country: None (occurrence: None)
  Receive Date: 20110210
  Receipt Date: 20101129
  Transmission Date: 20110831
  Serious: No
  Sender: FDA-Public Use
  Company Number: 1000017561

PATIENT
  Age: 33 Year
  Sex: Female

DRUGS (10)
  1. SOMA (CARISOPRODOL) (CARISOPRODOL) [Concomitant]
  2. MEDROL [Concomitant]
  3. SAVELLA [Suspect]
     Indication: MIGRAINE
     Dosage: 25 MG (25 MG, 1 IN 1 D), ORAL, 37.5 MG (37.5 MG, 1 IN 1 D), ORAL, 50 MG (50 MG, 1 IN 1 D), ORAL
     Route: 048
     Dates: start: 20100818, end: 20100914
  4. SAVELLA [Suspect]
     Indication: FIBROMYALGIA
     Dosage: 25 MG (25 MG, 1 IN 1 D), ORAL, 37.5 MG (37.5 MG, 1 IN 1 D), ORAL, 50 MG (50 MG, 1 IN 1 D), ORAL
     Route: 048
     Dates: start: 20100818, end: 20100914
  5. NAPROSYN (NAPROXEN) (NAPROXEN) [Concomitant]
  6. SAVELLA [Suspect]
     Indication: MIGRAINE
     Dosage: 100 MG (50 MG, 2 IN 1 D), ORAL, 100 MG (50 MG, 2 IN 1 D), ORAL
     Route: 048
     Dates: start: 20101015, end: 20101016
  7. SAVELLA [Suspect]
     Indication: FIBROMYALGIA
     Dosage: 100 MG (50 MG, 2 IN 1 D), ORAL, 100 MG (50 MG, 2 IN 1 D), ORAL
     Route: 048
     Dates: start: 20101015, end: 20101016
  8. SAVELLA [Suspect]
     Indication: MIGRAINE
     Dosage: 100 MG (50 MG, 2 IN 1 D), ORAL, 100 MG (50 MG, 2 IN 1 D), ORAL
     Route: 048
     Dates: start: 20101019, end: 20101020
  9. SAVELLA [Suspect]
     Indication: FIBROMYALGIA
     Dosage: 100 MG (50 MG, 2 IN 1 D), ORAL, 100 MG (50 MG, 2 IN 1 D), ORAL
     Route: 048
     Dates: start: 20101019, end: 20101020
  10. AMBIEN [Concomitant]

REACTIONS (2)
  - NAUSEA [None]
  - VOMITING [None]
